FAERS Safety Report 5754634-2 (Version None)
Quarter: 2008Q2

REPORT INFORMATION
  Report Type: 
  Country: None (occurrence: None)
  Receive Date: 20080530
  Receipt Date: 20080519
  Transmission Date: 20081010
  Serious: Yes (Other)
  Sender: FDA-Public Use
  Company Number: RO-PFIZER INC-2008043434

PATIENT
  Age: 77 Year
  Sex: Female
  Weight: 50 kg

DRUGS (7)
  1. ATORVASTATIN [Suspect]
     Route: 048
  2. INDAPAMIDE [Concomitant]
     Route: 048
  3. NICERGOLINE [Concomitant]
     Route: 048
  4. CLOPIDOGREL [Concomitant]
     Route: 048
  5. GINKGO BILOBA [Concomitant]
     Route: 048
  6. NEBIVOLOL HCL [Concomitant]
     Route: 048
  7. PIRACETAM [Concomitant]
     Route: 048

REACTIONS (1)
  - BLOOD CHOLESTEROL INCREASED [None]
